FAERS Safety Report 10571207 (Version 4)
Quarter: 2014Q4

REPORT INFORMATION
  Report Type: Spontaneous
  Country: JP (occurrence: JP)
  Receive Date: 20141107
  Receipt Date: 20141203
  Transmission Date: 20150529
  Serious: Yes (Hospitalization, Other)
  Sender: FDA-Public Use
  Company Number: JP-ELI_LILLY_AND_COMPANY-JP201410009911

PATIENT
  Age: 80 Year
  Sex: Female
  Weight: 39 kg

DRUGS (8)
  1. GRANISETRON                        /01178102/ [Concomitant]
     Active Substance: GRANISETRON
     Dosage: UNK
     Dates: start: 20120413
  2. MOSAPRIDE [Concomitant]
     Active Substance: MOSAPRIDE
     Dosage: UNK
     Route: 048
     Dates: start: 20120413
  3. MAGLAX [Concomitant]
     Active Substance: MAGNESIUM OXIDE
     Dosage: UNK
     Dates: start: 20120413
  4. JANUVIA [Concomitant]
     Active Substance: SITAGLIPTIN PHOSPHATE
     Dosage: UNK
     Dates: start: 20120413
  5. RESTAMIN                           /00000401/ [Concomitant]
     Dosage: UNK
     Route: 048
     Dates: start: 20120420
  6. GASTER [Concomitant]
     Active Substance: FAMOTIDINE
     Dosage: UNK
     Dates: start: 20120413
  7. GEMZAR [Suspect]
     Active Substance: GEMCITABINE HYDROCHLORIDE
     Indication: PANCREATIC CARCINOMA
     Dosage: 800 MG, UNK
     Route: 042
     Dates: start: 201203, end: 201409
  8. EXCELASE [Concomitant]
     Dosage: UNK
     Route: 048
     Dates: start: 20120413

REACTIONS (4)
  - Proteinuria [Recovering/Resolving]
  - Cardiac failure congestive [Unknown]
  - Inappropriate antidiuretic hormone secretion [Unknown]
  - Hypoalbuminaemia [Recovering/Resolving]

NARRATIVE: CASE EVENT DATE: 20140818
